FAERS Safety Report 4436114-X (Version None)
Quarter: 2004Q3

REPORT INFORMATION
  Report Type: 
  Country: None (occurrence: None)
  Receive Date: 20040726
  Receipt Date: 20040526
  Transmission Date: 20050211
  Serious: No
  Sender: FDA-Public Use
  Company Number: USA030434517

PATIENT
  Age: 78 Year
  Sex: Female

DRUGS (10)
  1. FORTEO [Suspect]
     Indication: OSTEOPOROSIS
     Dates: start: 20021201
  2. VIOXX [Concomitant]
  3. SYNTHROID [Concomitant]
  4. NEXIUM [Concomitant]
  5. NASONEX [Concomitant]
  6. DIOVAN [Concomitant]
  7. DICYCLOMINE [Concomitant]
  8. AMOXICILLIN [Concomitant]
  9. ALLEGRA [Concomitant]
  10. ADVAIR DISKUS 100/50 [Concomitant]

REACTIONS (3)
  - BLOOD PRESSURE INCREASED [None]
  - DIZZINESS [None]
  - VERTIGO POSITIONAL [None]
